FAERS Safety Report 24438599 (Version 1)
Quarter: 2024Q4

REPORT INFORMATION
  Report Type: Spontaneous
  Country: JP (occurrence: JP)
  Receive Date: 20241015
  Receipt Date: 20241015
  Transmission Date: 20250114
  Serious: Yes (Death)
  Sender: EPIC PHARM
  Company Number: JP-EPICPHARMA-JP-2024EPCLIT01208

PATIENT
  Age: 50 Year
  Sex: Male

DRUGS (12)
  1. PREGABALIN [Suspect]
     Active Substance: PREGABALIN
     Indication: Generalised anxiety disorder
     Route: 065
  2. PREGABALIN [Suspect]
     Active Substance: PREGABALIN
     Indication: Insomnia
  3. PREGABALIN [Suspect]
     Active Substance: PREGABALIN
     Indication: Drug dependence
  4. FLUNITRAZEPAM [Concomitant]
     Active Substance: FLUNITRAZEPAM
     Route: 065
  5. FLUNITRAZEPAM [Concomitant]
     Active Substance: FLUNITRAZEPAM
     Indication: Insomnia
  6. FLUNITRAZEPAM [Concomitant]
     Active Substance: FLUNITRAZEPAM
     Indication: Generalised anxiety disorder
  7. ZOLPIDEM [Concomitant]
     Active Substance: ZOLPIDEM TARTRATE
     Indication: Insomnia
     Route: 065
  8. ZOLPIDEM [Concomitant]
     Active Substance: ZOLPIDEM TARTRATE
     Indication: Generalised anxiety disorder
  9. ZOLPIDEM [Concomitant]
     Active Substance: ZOLPIDEM TARTRATE
  10. AMLODIPINE [Concomitant]
     Active Substance: AMLODIPINE BESYLATE
     Indication: Hypertension
     Route: 065
  11. SUVOREXANT [Concomitant]
     Active Substance: SUVOREXANT
     Indication: Insomnia
     Route: 065
  12. LOXOPROFEN [Concomitant]
     Active Substance: LOXOPROFEN
     Indication: Product used for unknown indication
     Route: 065

REACTIONS (3)
  - Toxicity to various agents [Fatal]
  - Overdose [Unknown]
  - Product use in unapproved indication [Unknown]
